FAERS Safety Report 16085740 (Version 4)
Quarter: 2019Q2

REPORT INFORMATION
  Report Type: Report from Study
  Country: RU (occurrence: RU)
  Receive Date: 20190318
  Receipt Date: 20190426
  Transmission Date: 20190711
  Serious: Yes (Death, Other)
  Sender: FDA-Public Use
  Company Number: RU-PFIZER INC-2018195826

PATIENT
  Age: 30 Year
  Sex: Male
  Weight: 72 kg

DRUGS (4)
  1. ICLUSIG [Concomitant]
     Active Substance: PONATINIB
     Indication: ACUTE LYMPHOCYTIC LEUKAEMIA
     Dosage: 45 MG, 1X/DAY
     Route: 048
  2. INOTUZUMAB OZOGAMICIN [Suspect]
     Active Substance: INOTUZUMAB OZOGAMICIN
     Dosage: 0.5 MG/M2, WEEKLY
     Route: 042
     Dates: start: 20180503, end: 20180718
  3. INOTUZUMAB OZOGAMICIN [Suspect]
     Active Substance: INOTUZUMAB OZOGAMICIN
     Indication: ACUTE LYMPHOCYTIC LEUKAEMIA
     Dosage: 0.8 MG/M2, WEEKLY
     Route: 042
     Dates: start: 20180425, end: 2018
  4. FLUCONAZOLE. [Concomitant]
     Active Substance: FLUCONAZOLE

REACTIONS (9)
  - Ascites [Unknown]
  - Aspartate aminotransferase increased [Recovered/Resolved]
  - Thrombocytopenia [Recovering/Resolving]
  - Alanine aminotransferase increased [Recovered/Resolved]
  - Hepatomegaly [Unknown]
  - Death [Fatal]
  - Pneumonia [Unknown]
  - Blood bilirubin increased [Recovered/Resolved]
  - Weight increased [Unknown]

NARRATIVE: CASE EVENT DATE: 20180510
